FAERS Safety Report 9979559 (Version 1)
Quarter: 2014Q1

REPORT INFORMATION
  Report Type: Report from Study
  Country: US (occurrence: US)
  Receive Date: 20140306
  Receipt Date: 20140306
  Transmission Date: 20141002
  Serious: No
  Sender: FDA-Public Use
  Company Number: US-ABBVIE-13P-163-1171048-00

PATIENT
  Age: 61 Year
  Sex: Female

DRUGS (14)
  1. HUMIRA [Suspect]
     Indication: ANKYLOSING SPONDYLITIS
     Dates: start: 20131002
  2. REQUIP [Concomitant]
     Indication: RESTLESS LEGS SYNDROME
  3. CITALOPRAM [Concomitant]
     Indication: DEPRESSION
  4. WELCHOL [Concomitant]
     Indication: BLOOD CHOLESTEROL INCREASED
  5. ADVAIR [Concomitant]
     Indication: ASTHMA
  6. ALBUTEROL [Concomitant]
     Indication: ASTHMA
     Dosage: RESCUE INHALER
  7. AROMASIN [Concomitant]
     Indication: BREAST CANCER
     Dosage: IN REMISSION AND HAD BEEN TAKING IT FOR 4 YEARS
  8. METHOTREXATE [Concomitant]
     Indication: ARTHRITIS
     Dosage: 6 PILLS WEEKLY
  9. FOLIC ACID [Concomitant]
     Indication: PRODUCT USED FOR UNKNOWN INDICATION
  10. POTASSIUM [Concomitant]
     Indication: MUSCLE SPASMS
  11. IBUPROFEN [Concomitant]
     Indication: PAIN
  12. VALTREX [Concomitant]
     Indication: ORAL HERPES
  13. ZOVIRAX [Concomitant]
     Indication: ORAL HERPES
  14. ASPIRIN [Concomitant]
     Indication: PRODUCT USED FOR UNKNOWN INDICATION
     Dosage: DAILY

REACTIONS (2)
  - Drug dose omission [Not Recovered/Not Resolved]
  - Aphthous stomatitis [Not Recovered/Not Resolved]
